FAERS Safety Report 4850101-9 (Version None)
Quarter: 2005Q4

REPORT INFORMATION
  Report Type: 
  Country: None (occurrence: None)
  Receive Date: 20051107
  Receipt Date: 20050726
  Transmission Date: 20060501
  Serious: Yes (Other)
  Sender: FDA-Public Use
  Company Number: PHEH2005US08238

PATIENT
  Age: 75 Year
  Sex: Female

DRUGS (2)
  1. ESTRADERM [Suspect]
     Dosage: TRANSDERMAL
     Route: 062
  2. PROVERA [Suspect]

REACTIONS (1)
  - BREAST CANCER [None]
